FAERS Safety Report 13637599 (Version 3)
Quarter: 2017Q3

REPORT INFORMATION
  Report Type: Spontaneous
  Country: CA (occurrence: CA)
  Receive Date: 20170609
  Receipt Date: 20170809
  Transmission Date: 20171127
  Serious: Yes (Death, Hospitalization)
  Sender: FDA-Public Use
  Company Number: CA-PFIZER INC-2017249604

PATIENT
  Age: 75 Year
  Sex: Female

DRUGS (13)
  1. REVATIO [Suspect]
     Active Substance: SILDENAFIL CITRATE
     Indication: PULMONARY ARTERIAL HYPERTENSION
     Dosage: 20 MG, 3X/DAY
     Route: 048
     Dates: start: 20150211
  2. VITAMIN D [Concomitant]
     Active Substance: CHOLECALCIFEROL
  3. CARIPUL [Concomitant]
     Active Substance: EPOPROSTENOL
  4. DOMPERIDONE [Concomitant]
     Active Substance: DOMPERIDONE
  5. IRON DEXTRAN INJECTION [Concomitant]
  6. SYNTHROID [Concomitant]
     Active Substance: LEVOTHYROXINE SODIUM
  7. ELAVIL [Concomitant]
     Active Substance: AMITRIPTYLINE HYDROCHLORIDE
  8. ASA [Concomitant]
     Active Substance: ASPIRIN
  9. MULTIVITAMINS [Concomitant]
     Active Substance: VITAMINS
  10. OXYGEN. [Concomitant]
     Active Substance: OXYGEN
  11. PARIET [Concomitant]
     Active Substance: RABEPRAZOLE SODIUM
  12. LASIX [Concomitant]
     Active Substance: FUROSEMIDE
  13. FERROUS SULFATE. [Concomitant]
     Active Substance: FERROUS SULFATE

REACTIONS (2)
  - Gastrointestinal haemorrhage [Not Recovered/Not Resolved]
  - Disease progression [Fatal]

NARRATIVE: CASE EVENT DATE: 20170605
